FAERS Safety Report 11649375 (Version 1)
Quarter: 2015Q4

REPORT INFORMATION
  Report Type: Spontaneous
  Country: US (occurrence: US)
  Receive Date: 20151021
  Receipt Date: 20151021
  Transmission Date: 20160304
  Serious: No
  Sender: FDA-Public Use
  Company Number: US-TARO-2015TAR00226

PATIENT
  Sex: Male

DRUGS (2)
  1. UNSPECIFIED MEDICATION(S) [Concomitant]
  2. PHENYTOIN SODIUM EXTENDED [Suspect]
     Active Substance: PHENYTOIN SODIUM
     Route: 048

REACTIONS (2)
  - Vomiting [Unknown]
  - Product preparation error [Unknown]
